FAERS Safety Report 7063913-0 (Version None)
Quarter: 2010Q4

REPORT INFORMATION
  Report Type: 
  Country: None (occurrence: None)
  Receive Date: 20101026
  Receipt Date: 20100910
  Transmission Date: 20110411
  Serious: No
  Sender: FDA-Public Use
  Company Number: US-ABBOTT-10P-163-0670917-00

PATIENT
  Sex: Female
  Weight: 89.892 kg

DRUGS (10)
  1. LUPRON DEPOT [Suspect]
     Indication: PRODUCT USED FOR UNKNOWN INDICATION
     Dosage: 3 MONTH DOSE
  2. LUPRON DEPOT [Suspect]
     Dosage: 3 MONTH DOSE
     Route: 050
     Dates: start: 20100819, end: 20100901
  3. VALIUM [Concomitant]
     Indication: PRODUCT USED FOR UNKNOWN INDICATION
  4. ELAVIL [Concomitant]
     Indication: PRODUCT USED FOR UNKNOWN INDICATION
  5. PERCOCET [Concomitant]
     Indication: PRODUCT USED FOR UNKNOWN INDICATION
  6. HYDROCODONE [Concomitant]
     Indication: PRODUCT USED FOR UNKNOWN INDICATION
  7. PROTONIX [Concomitant]
     Indication: DYSPEPSIA
  8. ARMOUR THYROID [Concomitant]
     Indication: HYPOTHYROIDISM
  9. BYSTOLIC [Concomitant]
     Indication: HYPERTENSION
  10. LEVAQUIN [Concomitant]
     Indication: PROPHYLAXIS URINARY TRACT INFECTION
     Dates: start: 20100901

REACTIONS (7)
  - ABDOMINAL PAIN [None]
  - BREAST PAIN [None]
  - CYSTITIS INTERSTITIAL [None]
  - GENITAL BURNING SENSATION [None]
  - GENITAL DISCOMFORT [None]
  - GENITAL PAIN [None]
  - VULVOVAGINAL PAIN [None]
